FAERS Safety Report 4793546-8 (Version None)
Quarter: 2005Q4

REPORT INFORMATION
  Report Type: 
  Country: None (occurrence: None)
  Receive Date: 20051011
  Receipt Date: 20051007
  Transmission Date: 20060501
  Serious: Yes (Death)
  Sender: FDA-Public Use
  Company Number: PHNU2005DE03398

PATIENT
  Age: 13 Year
  Sex: Female

DRUGS (1)
  1. LIORESAL [Suspect]
     Indication: MUSCLE SPASTICITY
     Dosage: 1 TABLET, TID
     Route: 048
     Dates: start: 20041001

REACTIONS (2)
  - CARDIAC FAILURE [None]
  - MYOCARDITIS [None]
